FAERS Safety Report 8417626 (Version 2)
Quarter: 2013Q3

REPORT INFORMATION
  Report Type: Spontaneous
  Country: US (occurrence: US)
  Receive Date: 20120221
  Receipt Date: 20130826
  Transmission Date: 20140515
  Serious: No
  Sender: FDA-Public Use
  Company Number: US-PFIZER INC-2012040733

PATIENT
  Sex: Female

DRUGS (2)
  1. CELEBREX [Suspect]
     Dosage: UNK
  2. CELEBREX [Suspect]
     Dosage: 200 MG

REACTIONS (4)
  - Pain [Unknown]
  - Fall [Unknown]
  - Back injury [Unknown]
  - Skeletal injury [Unknown]
